FAERS Safety Report 19834946 (Version 1)
Quarter: 2021Q3

REPORT INFORMATION
  Report Type: Spontaneous
  Country: US (occurrence: US)
  Receive Date: 20210915
  Receipt Date: 20210915
  Transmission Date: 20211014
  Serious: No
  Sender: FDA-Public Use
  Company Number: US-PFIZER INC-202101065896

PATIENT
  Age: 13 Year
  Sex: Female

DRUGS (1)
  1. METHOTREXATE SODIUM. [Suspect]
     Active Substance: METHOTREXATE SODIUM
     Indication: ALOPECIA TOTALIS
     Dosage: 7.5MG, WEEKLY (7.5MG QWK X 11 WEEKS)

REACTIONS (2)
  - Hepatic enzyme increased [Unknown]
  - Off label use [Unknown]
